FAERS Safety Report 10268464 (Version 1)
Quarter: 2014Q2

REPORT INFORMATION
  Report Type: Spontaneous
  Country: FR (occurrence: FR)
  Receive Date: 20140630
  Receipt Date: 20140630
  Transmission Date: 20141212
  Serious: Yes (Life-Threatening, Hospitalization, Other)
  Sender: FDA-Public Use
  Company Number: FR-ELI_LILLY_AND_COMPANY-FR201406008170

PATIENT
  Age: 75 Year
  Sex: Male

DRUGS (13)
  1. GEMZAR [Suspect]
     Indication: PRODUCT USED FOR UNKNOWN INDICATION
     Dosage: UNK UNK, OTHER
     Route: 042
     Dates: start: 201306
  2. GEMZAR [Suspect]
     Dosage: 1770 MG, OTHER
     Route: 042
     Dates: start: 20140417
  3. GEMZAR [Suspect]
     Dosage: 1770 MG, OTHER
     Route: 042
     Dates: start: 20140425
  4. TRAMADOL [Concomitant]
     Dosage: 100 MG, BID
     Route: 048
  5. KARDEGIC [Concomitant]
     Dosage: 75 MG, QD
     Route: 048
  6. LASILIX                            /00032601/ [Concomitant]
     Dosage: 125 MG, QD
     Route: 048
  7. LYRICA [Concomitant]
     Dosage: 125 MG, TID
     Route: 048
  8. DAFALGAN [Concomitant]
     Dosage: 500 MG, PRN
     Route: 048
  9. SERETIDE DISCUS [Concomitant]
     Dosage: 2 DF, QD
  10. HYDROCORTISONE [Concomitant]
     Dosage: 10 MG, TID
     Route: 048
  11. ATROVENT [Concomitant]
     Dosage: 2 DF, QD
     Route: 055
  12. PERMIXON [Concomitant]
     Dosage: 2 DF, QD
     Route: 048
  13. MOVICOL                            /01625101/ [Concomitant]
     Dosage: 1 DF, QD
     Route: 048

REACTIONS (5)
  - Acute respiratory failure [Recovered/Resolved]
  - Lung disorder [Unknown]
  - Malignant neoplasm progression [Unknown]
  - Pleural disorder [Unknown]
  - Rash macular [Unknown]
